FAERS Safety Report 7708160-1 (Version None)
Quarter: 2011Q3

REPORT INFORMATION
  Report Type: 
  Country: None (occurrence: None)
  Receive Date: 20110825
  Receipt Date: 20110815
  Transmission Date: 20111222
  Serious: No
  Sender: FDA-Public Use
  Company Number: US-BIOGENIDEC-2011BI019329

PATIENT
  Age: 55 Year
  Sex: Male

DRUGS (3)
  1. AMPYRA [Concomitant]
     Indication: GAIT DISTURBANCE
     Dates: start: 20110101, end: 20110101
  2. TYSABRI [Suspect]
     Indication: MULTIPLE SCLEROSIS
     Route: 042
     Dates: start: 20091209
  3. AMPYRA [Concomitant]
     Indication: VERTIGO
     Dates: start: 20110101, end: 20110101

REACTIONS (3)
  - ARTHRALGIA [None]
  - POLLAKIURIA [None]
  - VERTIGO [None]
